FAERS Safety Report 10465734 (Version 4)
Quarter: 2014Q4

REPORT INFORMATION
  Report Type: Report from Study
  Country: FR (occurrence: FR)
  Receive Date: 20140920
  Receipt Date: 20141001
  Transmission Date: 20150528
  Serious: Yes (Death, Hospitalization)
  Sender: FDA-Public Use
  Company Number: FR-AMGEN-FRACT2014070089

PATIENT
  Age: 82 Year
  Sex: Male
  Weight: 68 kg

DRUGS (5)
  1. PANITUMUMAB [Suspect]
     Active Substance: PANITUMUMAB
     Indication: OESOPHAGEAL ADENOCARCINOMA METASTATIC
     Dosage: 378 MG, UNK
     Route: 042
     Dates: start: 20120906, end: 20120918
  2. CALCIUM FOLINATE [Concomitant]
     Active Substance: LEUCOVORIN CALCIUM
     Indication: OESOPHAGEAL ADENOCARCINOMA METASTATIC
     Dosage: 692 MG, UNK
     Route: 042
     Dates: start: 20120906, end: 20120918
  3. ELOXATIN [Concomitant]
     Active Substance: OXALIPLATIN
     Indication: OESOPHAGEAL ADENOCARCINOMA METASTATIC
     Dosage: 147 MG, UNK
     Route: 042
     Dates: start: 20120906, end: 20120918
  4. FLUOROURACILE [Concomitant]
     Active Substance: FLUOROURACIL
     Dosage: 692 MG, UNK
     Route: 040
     Dates: start: 20120906, end: 20120918
  5. FLUOROURACILE [Concomitant]
     Active Substance: FLUOROURACIL
     Indication: OESOPHAGEAL ADENOCARCINOMA METASTATIC
     Dosage: 4152 MG, UNK
     Route: 042
     Dates: start: 20120906, end: 20120920

REACTIONS (1)
  - Death [Fatal]

NARRATIVE: CASE EVENT DATE: 20120924
